FAERS Safety Report 9011483 (Version 1)
Quarter: 2013Q1

REPORT INFORMATION
  Report Type: Spontaneous
  Country: US (occurrence: US)
  Receive Date: 20130111
  Receipt Date: 20130111
  Transmission Date: 20140127
  Serious: Yes (Disabling)
  Sender: FDA-Public Use
  Company Number: US-009507513-1301USA001690

PATIENT
  Age: 71 Year
  Sex: Male

DRUGS (12)
  1. SINGULAIR [Suspect]
  2. TIENAM [Concomitant]
     Indication: ASTHMA
  3. UNASYN [Concomitant]
     Indication: CHOLELITHIASIS
  4. [THERAPY UNSPECIFIED] [Concomitant]
     Indication: GASTRIC ULCER
  5. FORIT [Suspect]
     Indication: PNEUMONIA
     Dosage: 20 MG, UNK
     Route: 048
  6. CLARITHROMYCIN [Suspect]
     Indication: SCHIZOPHRENIA
     Dosage: 400 MG, UNK
     Route: 048
  7. BISOLVON [Suspect]
     Dosage: 12 MG, UNK
     Route: 048
  8. [THERAPY UNSPECIFIED] [Suspect]
     Dosage: 600 MG, UNK
     Route: 048
  9. CAMOSTATE [Suspect]
     Dosage: 400 MG, UNK
     Route: 048
  10. THEO-DUR [Suspect]
     Dosage: 400 MG, UNK
     Route: 048
  11. URSO [Suspect]
     Dosage: 300 MG, UNK
     Route: 048
  12. [THERAPY UNSPECIFIED] [Suspect]
     Dosage: 6 TABLETS
     Route: 048

REACTIONS (7)
  - Pneumonia [Unknown]
  - Jaundice [Unknown]
  - Haemolytic anaemia [Unknown]
  - Haemoglobin decreased [Unknown]
  - Chest pain [Unknown]
  - Decreased appetite [Unknown]
  - Abdominal pain [Unknown]
